FAERS Safety Report 20611949 (Version 1)
Quarter: 2022Q1

REPORT INFORMATION
  Report Type: Spontaneous
  Country: CA (occurrence: CA)
  Receive Date: 20220318
  Receipt Date: 20220318
  Transmission Date: 20220423
  Serious: Yes (Hospitalization, Other)
  Sender: FDA-Public Use
  Company Number: CA-PFIZER INC-202200409560

PATIENT
  Sex: Female

DRUGS (5)
  1. ENBREL [Suspect]
     Active Substance: ETANERCEPT
     Dosage: UNK
     Route: 065
  2. METHOTREXATE SODIUM [Suspect]
     Active Substance: METHOTREXATE SODIUM
     Dosage: UNK
     Route: 058
  3. SULFASALAZINE [Suspect]
     Active Substance: SULFASALAZINE
     Dosage: 2 G, 1X/DAY
     Route: 048
  4. HUMIRA [Suspect]
     Active Substance: ADALIMUMAB
     Indication: Crohn^s disease
     Dosage: 80 MG
     Route: 058
  5. PREDNISONE [Concomitant]
     Active Substance: PREDNISONE
     Dosage: 50 MG, 1X/DAY
     Route: 065

REACTIONS (5)
  - Drug ineffective [Unknown]
  - Crohn^s disease [Unknown]
  - Hip surgery [Unknown]
  - Insomnia [Unknown]
  - Rheumatoid arthritis [Unknown]
